FAERS Safety Report 9302992 (Version 1)
Quarter: 2013Q2

REPORT INFORMATION
  Report Type: Spontaneous
  Country: US (occurrence: None)
  Receive Date: 20130517
  Receipt Date: 20130517
  Transmission Date: 20140414
  Serious: Yes (Other)
  Sender: FDA-Public Use
  Company Number: B0891298A

PATIENT
  Age: 37 Year
  Sex: Female

DRUGS (2)
  1. SUMATRIPTAN SUCCINATE [Suspect]
     Indication: MIGRAINE
  2. NAPROXEN [Concomitant]

REACTIONS (2)
  - Colitis ischaemic [None]
  - Mucosal haemorrhage [None]
